FAERS Safety Report 14711299 (Version 4)
Quarter: 2018Q2

REPORT INFORMATION
  Report Type: Report from Study
  Country: CA (occurrence: CA)
  Receive Date: 20180403
  Receipt Date: 20180516
  Transmission Date: 20180711
  Serious: Yes (Hospitalization, Other)
  Sender: FDA-Public Use
  Company Number: CA-GILEAD-2018-0329955

PATIENT
  Age: 56 Year
  Sex: Male

DRUGS (2)
  1. SOFOSBUVIR W/VELPATASVIR [Suspect]
     Active Substance: SOFOSBUVIR\VELPATASVIR
     Indication: CHRONIC HEPATITIS C
     Dosage: 1 DF (400 MG), UNK (FOR 12 WEEKS)
     Route: 048
     Dates: start: 20180308
  2. RIBAVIRIN. [Suspect]
     Active Substance: RIBAVIRIN
     Indication: CHRONIC HEPATITIS C
     Dosage: UNK
     Route: 048
     Dates: start: 20180308

REACTIONS (4)
  - Jaundice [Unknown]
  - Renal failure [Unknown]
  - Vomiting [Unknown]
  - Liver disorder [Not Recovered/Not Resolved]
